FAERS Safety Report 9292559 (Version 1)
Quarter: 2013Q1

REPORT INFORMATION
  Report Type: Spontaneous
  Country: US (occurrence: None)
  Receive Date: 20121212
  Receipt Date: 20121212
  Transmission Date: 20140127
  Serious: No
  Sender: FDA-Public Use
  Company Number: 1210USA008889

PATIENT
  Age: 58 Year
  Sex: Male

DRUGS (3)
  1. PEGINTERFERON [Suspect]
     Indication: HEPATITIS C
     Dosage: UNK
     Dates: start: 20121015
  2. RIBAVIRIN [Suspect]
     Indication: HEPATITIS C
     Dosage: UNK, ORAL
     Dates: start: 20121015
  3. VICTRELIS [Suspect]
     Indication: HEPATITIS C
     Dosage: UNK, ORAL
     Route: 048
     Dates: start: 20121112

REACTIONS (9)
  - Pain in extremity [None]
  - Pain in extremity [None]
  - Influenza like illness [None]
  - Headache [None]
  - Chest pain [None]
  - Malaise [None]
  - Nausea [None]
  - Arthralgia [None]
  - Hypoaesthesia [None]
